FAERS Safety Report 25029957 (Version 1)
Quarter: 2025Q1

REPORT INFORMATION
  Report Type: Spontaneous
  Country: US (occurrence: US)
  Receive Date: 20250303
  Receipt Date: 20250303
  Transmission Date: 20250408
  Serious: Yes (Life-Threatening, Hospitalization, Other)
  Sender: HIKMA
  Company Number: US-MLMSERVICE-20250210-PI404213-00175-1

PATIENT
  Age: 74 Year
  Sex: Male

DRUGS (6)
  1. HEPARIN [Suspect]
     Active Substance: HEPARIN SODIUM
     Route: 041
  2. HEPARIN [Suspect]
     Active Substance: HEPARIN SODIUM
     Dosage: 5000 INTERNATIONAL UNIT, Q8H
     Route: 058
  3. HEPARIN [Suspect]
     Active Substance: HEPARIN SODIUM
     Indication: Thrombosis prophylaxis
     Route: 041
  4. ASPIRIN [Concomitant]
     Active Substance: ASPIRIN
     Indication: Antiplatelet therapy
     Route: 065
  5. CLOPIDOGREL [Concomitant]
     Active Substance: CLOPIDOGREL BISULFATE
     Indication: Antiplatelet therapy
     Route: 065
  6. LEUPROLIDE [Concomitant]
     Active Substance: LEUPROLIDE
     Indication: Prostate cancer
     Route: 065

REACTIONS (9)
  - Atrial fibrillation [Recovered/Resolved]
  - Engraft failure [Unknown]
  - Vascular graft occlusion [Unknown]
  - Atrioventricular block complete [Recovered/Resolved]
  - Pulseless electrical activity [Recovered/Resolved]
  - Cerebral ischaemia [Unknown]
  - Heparin-induced thrombocytopenia [Recovered/Resolved]
  - Deep vein thrombosis [Unknown]
  - Atrial thrombosis [Unknown]
